FAERS Safety Report 19957332 (Version 6)
Quarter: 2022Q2

REPORT INFORMATION
  Report Type: Spontaneous
  Country: GB (occurrence: GB)
  Receive Date: 20211014
  Receipt Date: 20220506
  Transmission Date: 20220721
  Serious: Yes (Death, Life-Threatening, Hospitalization, Disabling, Other)
  Sender: FDA-Public Use
  Company Number: GB-MYLANLABS-2018M1073364

PATIENT

DRUGS (25)
  1. LANSOPRAZOLE [Suspect]
     Active Substance: LANSOPRAZOLE
     Indication: Gastrooesophageal reflux disease
     Dosage: 30 MG, QD
     Route: 065
     Dates: end: 20180928
  2. LANSOPRAZOLE [Suspect]
     Active Substance: LANSOPRAZOLE
     Dosage: 30 MG, QD
     Route: 065
     Dates: end: 20180928
  3. LOSARTAN [Suspect]
     Active Substance: LOSARTAN
     Indication: Essential hypertension
     Dosage: 100 MILLIGRAM, QD, (100 MG QD) (FORMULATION REPORTED AS FILM-COATED TABLET)
     Route: 048
     Dates: end: 20180928
  4. LOSARTAN [Suspect]
     Active Substance: LOSARTAN
     Dosage: 200 MG, QD
     Route: 048
     Dates: start: 20170317, end: 20180928
  5. EZETIMIBE [Suspect]
     Active Substance: EZETIMIBE
     Indication: Blood cholesterol increased
     Dosage: 10 MILLIGRAM, QD, (10 MG, QD)
     Route: 048
     Dates: end: 20180928
  6. AMLODIPINE [Suspect]
     Active Substance: AMLODIPINE BESYLATE
     Indication: Hypertension
     Dosage: 100 MILLIGRAM, QD
     Route: 048
     Dates: start: 20180928, end: 20180928
  7. CLOZAPINE [Suspect]
     Active Substance: CLOZAPINE
     Indication: Schizophrenia
     Dosage: 200 MG, QD
     Route: 048
     Dates: start: 20170317, end: 20180928
  8. CLOZAPINE [Suspect]
     Active Substance: CLOZAPINE
     Dosage: 200 MG, QD
     Route: 048
     Dates: start: 20170317, end: 20180928
  9. CLOZARIL [Suspect]
     Active Substance: CLOZAPINE
     Indication: Schizophrenia
     Dosage: 200 MILLIGRAM, QD, (200 MG, PM, 1 DAY)
     Route: 048
     Dates: start: 20170317, end: 20180928
  10. FELODIPINE [Suspect]
     Active Substance: FELODIPINE
     Indication: Hypertension
     Dosage: 10 MILLIGRAM, QD, (10 MG QD)
     Route: 048
     Dates: end: 20180928
  11. HUMALOG [Suspect]
     Active Substance: INSULIN LISPRO
     Indication: Diabetes mellitus
     Dosage: 120 INTERNATIONAL UNIT, TID
     Route: 048
     Dates: end: 20180928
  12. HUMALOG [Suspect]
     Active Substance: INSULIN LISPRO
     Dosage: 120 INTERNATIONAL UNIT, TID
     Route: 048
     Dates: end: 20180928
  13. HUMALOG [Suspect]
     Active Substance: INSULIN LISPRO
     Dosage: 60 IU, TID
     Route: 048
     Dates: end: 20180928
  14. HUMALOG [Suspect]
     Active Substance: INSULIN LISPRO
     Dosage: 120 INTERNATIONAL UNITS, TID
     Dates: end: 20180928
  15. HUMALOG [Suspect]
     Active Substance: INSULIN LISPRO
     Dosage: 360 IU, QD
     Route: 048
  16. HUMALOG [Suspect]
     Active Substance: INSULIN LISPRO
     Dosage: 60 INTERNATIONAL UNIT, TID
     Route: 048
     Dates: end: 20180928
  17. HUMALOG [Suspect]
     Active Substance: INSULIN LISPRO
     Dosage: UNK INTERNATIONAL UNIT
     Route: 048
     Dates: end: 20180928
  18. HUMALOG [Suspect]
     Active Substance: INSULIN LISPRO
     Dosage: UNK INTERNATIONAL UNIT, TID
     Route: 048
     Dates: end: 20180928
  19. HUMALOG [Suspect]
     Active Substance: INSULIN LISPRO
     Dosage: UNK INTERNATIONAL UNIT, TID
     Route: 048
     Dates: end: 20180928
  20. HUMALOG MIX50/50 [Suspect]
     Active Substance: INSULIN LISPRO
     Indication: Diabetes mellitus
     Dosage: 120 INTERNATIONAL UNIT, 3 TIMES A DAY
     Route: 048
     Dates: end: 20180928
  21. PRAVASTATIN [Suspect]
     Active Substance: PRAVASTATIN
     Indication: Blood cholesterol increased
     Dosage: 40 MG, QD
     Route: 048
  22. PRAVASTATIN [Suspect]
     Active Substance: PRAVASTATIN
     Dosage: 40 MILLIGRAM, QD (40 MG, PM, QHS, UNIT DOSE: 40 MG)
     Route: 048
  23. PRAVASTATIN [Suspect]
     Active Substance: PRAVASTATIN
     Dosage: 40 MG, QD M QHS
     Route: 048
  24. PRAVASTATIN [Suspect]
     Active Substance: PRAVASTATIN
     Dosage: 40 MILLIGRAM, QD (40 MG, QD PM QHS)
     Route: 048
  25. SERTRALINE HYDROCHLORIDE [Suspect]
     Active Substance: SERTRALINE HYDROCHLORIDE
     Indication: Depression
     Dosage: 50 MILLIGRAM, QD, (50 MG, QD, AM)
     Route: 048
     Dates: start: 201709, end: 20180928

REACTIONS (8)
  - Loss of consciousness [Fatal]
  - Pneumonia [Fatal]
  - Incorrect route of product administration [Fatal]
  - Multiple organ dysfunction syndrome [Fatal]
  - Medication error [Fatal]
  - Intentional product misuse [Fatal]
  - Off label use [Unknown]
  - Overdose [Unknown]

NARRATIVE: CASE EVENT DATE: 20180101
